FAERS Safety Report 18586710 (Version 2)
Quarter: 2021Q1

REPORT INFORMATION
  Report Type: Spontaneous
  Country: IT (occurrence: IT)
  Receive Date: 20201207
  Receipt Date: 20210209
  Transmission Date: 20210419
  Serious: Yes (Other)
  Sender: FDA-Public Use
  Company Number: IT-BRISTOL-MYERS SQUIBB COMPANY-BMS-2020-100568

PATIENT
  Age: 54 Year
  Sex: Male

DRUGS (3)
  1. COUMADIN [Suspect]
     Active Substance: WARFARIN SODIUM
     Indication: PERIPHERAL ISCHAEMIA
     Dosage: 1 DOSAGE FORM AS NECESSARY
     Route: 048
  2. RAMIPRIL. [Concomitant]
     Active Substance: RAMIPRIL
     Indication: HYPERTENSION
     Dosage: 1 DOSAGE FORM, QD
     Route: 048
  3. CARDIOASPIRIN [Interacting]
     Active Substance: ASPIRIN
     Indication: PERIPHERAL ISCHAEMIA
     Dosage: UNK
     Route: 048

REACTIONS (6)
  - Micturition disorder [Recovering/Resolving]
  - Labelled drug-drug interaction medication error [Recovering/Resolving]
  - Strangury [Recovering/Resolving]
  - International normalised ratio increased [Recovering/Resolving]
  - Haematuria [Recovering/Resolving]
  - Overdose [Recovering/Resolving]

NARRATIVE: CASE EVENT DATE: 20190322
